FAERS Safety Report 20214839 (Version 2)
Quarter: 2022Q1

REPORT INFORMATION
  Report Type: Report from Study
  Country: NL (occurrence: NL)
  Receive Date: 20211222
  Receipt Date: 20220107
  Transmission Date: 20220424
  Serious: Yes (Hospitalization, Other)
  Sender: FDA-Public Use
  Company Number: NL-BRISTOL-MYERS SQUIBB COMPANY-BMS-2021-136701

PATIENT
  Age: 65 Year
  Sex: Female
  Weight: 84 kg

DRUGS (4)
  1. NIVOLUMAB [Suspect]
     Active Substance: NIVOLUMAB
     Indication: Bladder cancer
     Dosage: 1 MG/KG, 2 DOSAGES
     Route: 042
     Dates: start: 20211115, end: 20211206
  2. IPILIMUMAB [Suspect]
     Active Substance: IPILIMUMAB
     Indication: Bladder cancer
     Dosage: 3 MG/KG, 2 DOSAGES
     Route: 042
     Dates: start: 20211115, end: 20211206
  3. CIPROFLOXACIN [Concomitant]
     Active Substance: CIPROFLOXACIN
     Indication: Urinary tract infection
     Dosage: 500 MG, 2 DD1
     Route: 065
     Dates: start: 20211014, end: 20211104
  4. LOPERAMIDE [Concomitant]
     Active Substance: LOPERAMIDE
     Indication: Diarrhoea
     Dosage: 2 MG, 4 DD1
     Route: 065
     Dates: start: 20210902

REACTIONS (2)
  - Hepatitis [Recovering/Resolving]
  - Pneumonitis [Recovering/Resolving]

NARRATIVE: CASE EVENT DATE: 20211212
